FAERS Safety Report 19222755 (Version 2)
Quarter: 2021Q2

REPORT INFORMATION
  Report Type: Spontaneous
  Country: US (occurrence: US)
  Receive Date: 20210506
  Receipt Date: 20210609
  Transmission Date: 20210717
  Serious: Yes (Other)
  Sender: FDA-Public Use
  Company Number: US-PFIZER INC-2021461430

PATIENT
  Age: 84 Year
  Sex: Female
  Weight: 74.38 kg

DRUGS (12)
  1. LOSARTAN. [Concomitant]
     Active Substance: LOSARTAN
  2. ATORVASTATIN [Concomitant]
     Active Substance: ATORVASTATIN
     Dosage: UNK, 1X/DAY
     Dates: start: 2018
  3. CHANTIX [Suspect]
     Active Substance: VARENICLINE TARTRATE
     Indication: SMOKING CESSATION THERAPY
     Dosage: 1 MG FOR 90 DAYS
     Route: 048
     Dates: start: 202103, end: 202104
  4. AMLODIPINE [Concomitant]
     Active Substance: AMLODIPINE BESYLATE
     Indication: HYPERTENSION
     Dosage: UNK, 1X/DAY
     Dates: start: 2019
  5. CHANTIX [Suspect]
     Active Substance: VARENICLINE TARTRATE
     Dosage: 0.5 MG FOR 90 DAYS
     Route: 048
     Dates: start: 202103, end: 202104
  6. ALLOPURINOL. [Concomitant]
     Active Substance: ALLOPURINOL
  7. NOVOLOG [Concomitant]
     Active Substance: INSULIN ASPART
  8. HYDROCHLOROTHIAZIDE. [Concomitant]
     Active Substance: HYDROCHLOROTHIAZIDE
  9. METOPROLOL TARTRATE. [Concomitant]
     Active Substance: METOPROLOL TARTRATE
  10. HYDRALAZINE [Concomitant]
     Active Substance: HYDRALAZINE HYDROCHLORIDE
  11. CILOSTAZOL. [Concomitant]
     Active Substance: CILOSTAZOL
  12. RANOLAZINE. [Concomitant]
     Active Substance: RANOLAZINE
     Indication: CARDIAC DISORDER
     Dosage: UNK, DAILY
     Dates: start: 202103

REACTIONS (4)
  - Arteriosclerosis coronary artery [Unknown]
  - Atrioventricular block [Unknown]
  - Blood cholesterol abnormal [Unknown]
  - Cardiac disorder [Unknown]
